FAERS Safety Report 21347033 (Version 1)
Quarter: 2022Q3

REPORT INFORMATION
  Report Type: Spontaneous
  Country: US (occurrence: US)
  Receive Date: 20220918
  Receipt Date: 20220918
  Transmission Date: 20221026
  Serious: No
  Sender: FDA-Public Use
  Company Number: US-AMGEN-USASP2022157806

PATIENT
  Age: 65 Year
  Sex: Female

DRUGS (1)
  1. MVASI [Suspect]
     Active Substance: BEVACIZUMAB-AWWB
     Indication: Uterine cancer
     Dosage: 1200 MILLIGRAM
     Route: 065

REACTIONS (2)
  - Off label use [Unknown]
  - Hypertension [Unknown]

NARRATIVE: CASE EVENT DATE: 20220831
